FAERS Safety Report 13869401 (Version 1)
Quarter: 2017Q3

REPORT INFORMATION
  Report Type: Spontaneous
  Country: US (occurrence: US)
  Receive Date: 20170815
  Receipt Date: 20170815
  Transmission Date: 20171127
  Serious: Yes (Hospitalization)
  Sender: FDA-Public Use
  Company Number: US-PFIZER INC-2017350181

PATIENT
  Age: 44 Year
  Sex: Female
  Weight: 54 kg

DRUGS (2)
  1. OPDIVO [Suspect]
     Active Substance: NIVOLUMAB
     Indication: PANCREATIC CARCINOMA METASTATIC
     Dosage: 240 MG, UNK
     Route: 042
     Dates: start: 20170511, end: 20170525
  2. TORISEL [Suspect]
     Active Substance: TEMSIROLIMUS
     Indication: ADENOCARCINOMA PANCREAS
     Dosage: 25 MG, UNK
     Route: 042
     Dates: start: 20170420, end: 20170504

REACTIONS (2)
  - Neoplasm progression [Not Recovered/Not Resolved]
  - Hypothyroidism [Not Recovered/Not Resolved]

NARRATIVE: CASE EVENT DATE: 20170604
